FAERS Safety Report 25381420 (Version 2)
Quarter: 2025Q3

REPORT INFORMATION
  Report Type: Report from Study
  Country: US (occurrence: US)
  Receive Date: 20250530
  Receipt Date: 20250809
  Transmission Date: 20251020
  Serious: Yes (Other)
  Sender: ALEXION PHARMACEUTICALS
  Company Number: US-AstraZeneca-CH-00878332A

PATIENT
  Age: 77 Year
  Sex: Female
  Weight: 86.182 kg

DRUGS (4)
  1. DAPAGLIFLOZIN [Suspect]
     Active Substance: DAPAGLIFLOZIN
     Route: 065
  2. TEZEPELUMAB [Suspect]
     Active Substance: TEZEPELUMAB
     Indication: Asthma
     Dosage: 210MILLIGRAM PER MILLILITRE, Q4W
     Dates: start: 20240909
  3. TEZEPELUMAB [Suspect]
     Active Substance: TEZEPELUMAB
  4. BREZTRI [Suspect]
     Active Substance: BUDESONIDE\FORMOTEROL\GLYCOPYRROLATE
     Route: 065

REACTIONS (15)
  - Dyspnoea [Recovering/Resolving]
  - Asthma [Recovering/Resolving]
  - Fatigue [Recovering/Resolving]
  - Chest discomfort [Unknown]
  - Device use issue [Unknown]
  - Atrial fibrillation [Unknown]
  - Drug hypersensitivity [Unknown]
  - Cardiomegaly [Unknown]
  - Interstitial lung disease [Unknown]
  - Obesity [Unknown]
  - Bronchiectasis [Unknown]
  - Hiatus hernia [Unknown]
  - Pneumonia [Unknown]
  - Coronary artery disease [Unknown]
  - Sleep apnoea syndrome [Unknown]
